FAERS Safety Report 17588625 (Version 1)
Quarter: 2020Q1

REPORT INFORMATION
  Report Type: Spontaneous
  Country: MY (occurrence: MY)
  Receive Date: 20200327
  Receipt Date: 20200327
  Transmission Date: 20200409
  Serious: Yes (Other)
  Sender: FDA-Public Use
  Company Number: MY-VIFOR (INTERNATIONAL) INC.-VIT-2020-04857

PATIENT
  Age: 39 Year
  Sex: Female

DRUGS (2)
  1. EPOETIN BETA [Concomitant]
     Active Substance: ERYTHROPOIETIN
     Indication: NEPHROGENIC ANAEMIA
     Route: 065
     Dates: end: 20200203
  2. MIRCERA [Suspect]
     Active Substance: METHOXY POLYETHYLENE GLYCOL-EPOETIN BETA
     Indication: NEPHROGENIC ANAEMIA
     Route: 065
     Dates: start: 20200302

REACTIONS (3)
  - Periorbital swelling [Unknown]
  - Eye pruritus [Unknown]
  - Lacrimation increased [Unknown]

NARRATIVE: CASE EVENT DATE: 20200302
